FAERS Safety Report 16070439 (Version 4)
Quarter: 2019Q2

REPORT INFORMATION
  Report Type: Spontaneous
  Country: CA (occurrence: CA)
  Receive Date: 20190314
  Receipt Date: 20190430
  Transmission Date: 20190711
  Serious: Yes (Life-Threatening)
  Sender: FDA-Public Use
  Company Number: CA-ROCHE-2278471

PATIENT
  Age: 52 Year
  Sex: Female

DRUGS (14)
  1. XOLAIR [Suspect]
     Active Substance: OMALIZUMAB
     Route: 058
     Dates: start: 20181025
  2. XOLAIR [Suspect]
     Active Substance: OMALIZUMAB
     Route: 058
     Dates: start: 20181109
  3. XOLAIR [Suspect]
     Active Substance: OMALIZUMAB
     Route: 058
     Dates: start: 20181123
  4. XOLAIR [Suspect]
     Active Substance: OMALIZUMAB
     Route: 058
     Dates: start: 20180912
  5. OXYNEO [Concomitant]
     Active Substance: OXYCODONE
     Indication: PAIN
     Route: 065
  6. XOLAIR [Suspect]
     Active Substance: OMALIZUMAB
     Route: 058
     Dates: start: 20181025
  7. XOLAIR [Suspect]
     Active Substance: OMALIZUMAB
     Route: 058
     Dates: start: 20181211
  8. VENTOLIN [Concomitant]
     Active Substance: ALBUTEROL SULFATE
     Indication: PRODUCT USED FOR UNKNOWN INDICATION
     Route: 065
  9. SYMBICORT [Concomitant]
     Active Substance: BUDESONIDE\FORMOTEROL FUMARATE DIHYDRATE
     Indication: PRODUCT USED FOR UNKNOWN INDICATION
     Route: 065
  10. XOLAIR [Suspect]
     Active Substance: OMALIZUMAB
     Indication: ASTHMA
     Route: 058
     Dates: start: 20180727
  11. LYRICA [Concomitant]
     Active Substance: PREGABALIN
     Indication: PRODUCT USED FOR UNKNOWN INDICATION
     Route: 065
  12. OXYCODONE HYDROCHLORIDE. [Concomitant]
     Active Substance: OXYCODONE HYDROCHLORIDE
     Indication: PAIN
     Route: 065
  13. XOLAIR [Suspect]
     Active Substance: OMALIZUMAB
     Route: 058
  14. XOLAIR [Suspect]
     Active Substance: OMALIZUMAB
     Route: 058
     Dates: start: 20181221

REACTIONS (27)
  - Pain [Unknown]
  - Cardiac discomfort [Unknown]
  - Feeling abnormal [Unknown]
  - Injury [Unknown]
  - Weight decreased [Unknown]
  - Wrong product administered [Unknown]
  - Vomiting [Unknown]
  - Depression [Unknown]
  - Arthropathy [Recovering/Resolving]
  - Obsessive-compulsive disorder [Unknown]
  - Incorrect product administration duration [Unknown]
  - Fear of injection [Unknown]
  - Nasopharyngitis [Unknown]
  - Confusional state [Unknown]
  - Dyspnoea [Unknown]
  - Malaise [Unknown]
  - Rash [Unknown]
  - Hypersensitivity [Unknown]
  - Apparent death [Unknown]
  - Arthralgia [Recovering/Resolving]
  - Tremor [Unknown]
  - Injection site pain [Unknown]
  - Peripheral swelling [Unknown]
  - Headache [Unknown]
  - Weight increased [Unknown]
  - Gait disturbance [Unknown]
  - Chest pain [Unknown]

NARRATIVE: CASE EVENT DATE: 20180727
